FAERS Safety Report 6445876-1 (Version None)
Quarter: 2009Q4

REPORT INFORMATION
  Report Type: 
  Country: None (occurrence: None)
  Receive Date: 20091119
  Receipt Date: 20091114
  Transmission Date: 20100525
  Serious: Yes (Other)
  Sender: FDA-Public Use
  Company Number: FR-TEVA-214634ISR

PATIENT
  Sex: Female

DRUGS (7)
  1. METFORMIN HCL [Suspect]
     Indication: DIABETES MELLITUS
     Route: 048
     Dates: start: 20031101, end: 20091001
  2. ACETYLSALICYLIC ACID [Concomitant]
     Route: 048
  3. INDAPAMIDE [Concomitant]
     Route: 048
  4. CARBUTAMIDE [Concomitant]
     Route: 048
  5. TRIMETAZIDINE HYDROCHLORIDE [Concomitant]
     Route: 048
  6. PARACETAMOL [Concomitant]
  7. FLAVONOID EXTRACT [Concomitant]

REACTIONS (2)
  - PRODUCT ODOUR ABNORMAL [None]
  - URINE ODOUR ABNORMAL [None]
